FAERS Safety Report 22343823 (Version 1)
Quarter: 2023Q2

REPORT INFORMATION
  Report Type: Spontaneous
  Country: CA (occurrence: CA)
  Receive Date: 20230519
  Receipt Date: 20230519
  Transmission Date: 20230721
  Serious: Yes (Other)
  Sender: FDA-Public Use
  Company Number: None

PATIENT
  Age: 47 Year
  Sex: Male

DRUGS (7)
  1. METHOTREXATE SODIUM [Suspect]
     Active Substance: METHOTREXATE SODIUM
     Indication: Product used for unknown indication
     Dosage: 1 EVERY 1 WEEKS
  2. BETAMETHASONE\CALCIPOTRIENE [Concomitant]
     Active Substance: BETAMETHASONE\CALCIPOTRIENE
     Dosage: TOPICAL
  3. CELEBREX [Concomitant]
     Active Substance: CELECOXIB
     Dosage: 2 EVERY 1 DAYS
  4. FOLIC ACID [Concomitant]
     Active Substance: FOLIC ACID
     Dosage: 1 EVERY 1 WEEKS
  5. INFLIXIMAB [Concomitant]
     Active Substance: INFLIXIMAB
     Dosage: FREQUENCY: CYCLICAL
  6. LEFLUNOMIDE [Concomitant]
     Active Substance: LEFLUNOMIDE
     Dosage: 2 EVERY 1 DAYS
  7. METFORMIN [Concomitant]
     Active Substance: METFORMIN HYDROCHLORIDE
     Indication: Diabetes mellitus
     Dosage: EVERY 1 DAYS

REACTIONS (8)
  - Arthralgia [Not Recovered/Not Resolved]
  - Bursitis [Not Recovered/Not Resolved]
  - Condition aggravated [Not Recovered/Not Resolved]
  - Hepatic enzyme increased [Not Recovered/Not Resolved]
  - Lymphocytosis [Not Recovered/Not Resolved]
  - Psoriasis [Not Recovered/Not Resolved]
  - Tendonitis [Not Recovered/Not Resolved]
  - Thrombocytopenia [Not Recovered/Not Resolved]
